FAERS Safety Report 4421971-3 (Version None)
Quarter: 2004Q3

REPORT INFORMATION
  Report Type: 
  Country: None (occurrence: None)
  Receive Date: 20040709
  Receipt Date: 20030630
  Transmission Date: 20050211
  Serious: Yes (Other)
  Sender: FDA-Public Use
  Company Number: USA-2002-007318

PATIENT
  Age: 54 Year
  Sex: Female

DRUGS (2)
  1. ULTRAVIST 300 [Suspect]
     Indication: COMPUTERISED TOMOGRAM
     Dosage: 100 ML, I DOSE, INTRAVENOUS
     Route: 042
     Dates: start: 20021021, end: 20021021
  2. CONTRAST MEDIA [Concomitant]

REACTIONS (4)
  - ASTHMA [None]
  - PRURITUS [None]
  - URTICARIA [None]
  - WHEEZING [None]
